FAERS Safety Report 7657750-3 (Version None)
Quarter: 2011Q3

REPORT INFORMATION
  Report Type: 
  Country: None (occurrence: None)
  Receive Date: 20110804
  Receipt Date: 20110705
  Transmission Date: 20111222
  Serious: No
  Sender: FDA-Public Use
  Company Number: US-BAYER-2011-059826

PATIENT
  Sex: Female

DRUGS (1)
  1. ALEVE (CAPLET) [Suspect]
     Dosage: 2 DF, QD
     Route: 048
     Dates: start: 20030101, end: 20110601

REACTIONS (4)
  - PRURITUS [None]
  - ADVERSE EVENT [None]
  - RASH [None]
  - PAIN IN EXTREMITY [None]
